FAERS Safety Report 21599141 (Version 2)
Quarter: 2023Q2

REPORT INFORMATION
  Report Type: Report from Study
  Country: CN (occurrence: CN)
  Receive Date: 20221115
  Receipt Date: 20230524
  Transmission Date: 20230721
  Serious: Yes (Hospitalization)
  Sender: FDA-Public Use
  Company Number: CN-ABBVIE-4134679

PATIENT
  Age: 53 Year
  Sex: Male
  Weight: 62.5 kg

DRUGS (12)
  1. VENETOCLAX [Suspect]
     Active Substance: VENETOCLAX
     Indication: Acute myeloid leukaemia
     Route: 048
     Dates: start: 20220901, end: 20220901
  2. VENETOCLAX [Suspect]
     Active Substance: VENETOCLAX
     Indication: Acute myeloid leukaemia
     Route: 048
     Dates: start: 20220902, end: 20220902
  3. VENETOCLAX [Suspect]
     Active Substance: VENETOCLAX
     Indication: Acute myeloid leukaemia
     Route: 048
     Dates: start: 20220903, end: 20220928
  4. VENETOCLAX [Suspect]
     Active Substance: VENETOCLAX
     Indication: Acute myeloid leukaemia
     Route: 048
     Dates: start: 20221012
  5. AZACITIDINE [Suspect]
     Active Substance: AZACITIDINE
     Indication: Acute myeloid leukaemia
     Dosage: DAY 1 THROUGH DAY 7 OF EACH 28-DAY CYCLE
     Route: 058
     Dates: start: 20220901, end: 20220907
  6. AZACITIDINE [Suspect]
     Active Substance: AZACITIDINE
     Indication: Acute myeloid leukaemia
     Dosage: DAY 1 THROUGH DAY 7 OF EACH 28-DAY CYCLE
     Route: 058
     Dates: start: 20221012
  7. MAGNESIUM ISOGLYCYRRHIZINATE [Concomitant]
     Active Substance: MAGNESIUM ISOGLYCYRRHIZINATE
     Indication: Hepatic failure
     Route: 041
     Dates: start: 20220821, end: 20220906
  8. PIPERACILLIN AND TAZOBACTAM [Concomitant]
     Active Substance: PIPERACILLIN SODIUM\TAZOBACTAM SODIUM
     Indication: Pneumonia
     Dosage: TIME INTERVAL: 0.33333333 DAYS
     Route: 041
     Dates: start: 20220824, end: 20220929
  9. ETHAMSYLATE [Concomitant]
     Active Substance: ETHAMSYLATE
     Indication: Haemorrhage prophylaxis
     Route: 041
     Dates: start: 20220818, end: 20221005
  10. POTASSIUM CHLORIDE [Concomitant]
     Active Substance: POTASSIUM CHLORIDE
     Indication: Hypokalaemia
     Dosage: TIME INTERVAL: 0.33333333 DAYS: SUSTAINED-RELEASE TABLETS
     Dates: start: 20220818, end: 20220915
  11. SODIUM BICARBONATE [Concomitant]
     Active Substance: SODIUM BICARBONATE
     Indication: Hyperphosphataemia
     Route: 041
     Dates: start: 20220902, end: 20220910
  12. COMPOUND COPTIS [Concomitant]
     Indication: Pain prophylaxis
     Dosage: TIME INTERVAL: AS NECESSARY: OIL COATING
     Route: 061
     Dates: start: 20220903, end: 20220908

REACTIONS (1)
  - Myelosuppression [Recovered/Resolved]

NARRATIVE: CASE EVENT DATE: 20220904
